FAERS Safety Report 22243214 (Version 1)
Quarter: 2023Q2

REPORT INFORMATION
  Report Type: Report from Study
  Country: US (occurrence: US)
  Receive Date: 20230424
  Receipt Date: 20230424
  Transmission Date: 20230721
  Serious: Yes (Other)
  Sender: FDA-Public Use
  Company Number: US-GILEAD-2023-0625327

PATIENT
  Age: 64 Year
  Sex: Male

DRUGS (1)
  1. AZTREONAM LYSINE [Suspect]
     Active Substance: AZTREONAM LYSINE
     Indication: Infective exacerbation of bronchiectasis
     Dosage: 75 MG, TID (1 VIAL (75 MG) VIA ALTERA NEBULIZER. THREE TIMES DAILY FOR 28 DAYS ON, 28 DAYS OFF)
     Route: 055

REACTIONS (2)
  - Pneumonia pseudomonal [Unknown]
  - Off label use [Unknown]
